FAERS Safety Report 24784939 (Version 1)
Quarter: 2024Q4

REPORT INFORMATION
  Report Type: Spontaneous
  Country: US (occurrence: None)
  Receive Date: 20241228
  Receipt Date: 20241228
  Transmission Date: 20250115
  Serious: No
  Sender: ALEXION PHARMACEUTICALS
  Company Number: 202412USA022921US

PATIENT
  Age: 50 Year

DRUGS (7)
  1. FARXIGA [Suspect]
     Active Substance: DAPAGLIFLOZIN PROPANEDIOL
  2. FARXIGA [Suspect]
     Active Substance: DAPAGLIFLOZIN PROPANEDIOL
     Route: 048
  3. FARXIGA [Suspect]
     Active Substance: DAPAGLIFLOZIN PROPANEDIOL
  4. FARXIGA [Suspect]
     Active Substance: DAPAGLIFLOZIN PROPANEDIOL
     Route: 048
  5. ENTRESTO [Concomitant]
     Active Substance: SACUBITRIL\VALSARTAN
  6. CARVEDILOL [Concomitant]
     Active Substance: CARVEDILOL
  7. SPIRONOLACTONE [Concomitant]
     Active Substance: SPIRONOLACTONE

REACTIONS (11)
  - Hypersensitivity [Unknown]
  - Fear of death [Unknown]
  - Dyspnoea [Unknown]
  - Fatigue [Unknown]
  - Cardiac disorder [Unknown]
  - Fluid retention [Unknown]
  - Chest pain [Unknown]
  - Panic disorder [Unknown]
  - Cough [Unknown]
  - Incorrect route of product administration [Unknown]
  - Joint swelling [Unknown]
